FAERS Safety Report 15127427 (Version 5)
Quarter: 2019Q2

REPORT INFORMATION
  Report Type: Report from Study
  Country: US (occurrence: US)
  Receive Date: 20180710
  Receipt Date: 20190627
  Transmission Date: 20190711
  Serious: Yes (Hospitalization)
  Sender: FDA-Public Use
  Company Number: US-ACTELION-A-NJ2018-174998

PATIENT
  Sex: Female
  Weight: 90.7 kg

DRUGS (4)
  1. ADCIRCA [Concomitant]
     Active Substance: TADALAFIL
  2. OPSUMIT [Suspect]
     Active Substance: MACITENTAN
     Indication: PULMONARY ARTERIAL HYPERTENSION
     Dosage: 10 MG, QD
     Route: 048
  3. WARFARIN [Concomitant]
     Active Substance: WARFARIN
  4. ELIQUIS [Concomitant]
     Active Substance: APIXABAN

REACTIONS (15)
  - Fluid retention [Unknown]
  - Urosepsis [Unknown]
  - Oxygen saturation decreased [Unknown]
  - Therapy non-responder [Unknown]
  - Blood potassium decreased [Unknown]
  - Urinary tract infection [Unknown]
  - Wound infection [Unknown]
  - Cardiac failure congestive [Unknown]
  - Fatigue [Unknown]
  - Asthenia [Unknown]
  - Pneumonia [Unknown]
  - Dehydration [Unknown]
  - Somnolence [Unknown]
  - Dyspnoea [Unknown]
  - Oedema [Unknown]
